FAERS Safety Report 16146460 (Version 1)
Quarter: 2019Q2

REPORT INFORMATION
  Report Type: Spontaneous
  Country: US (occurrence: US)
  Receive Date: 20190402
  Receipt Date: 20190402
  Transmission Date: 20190711
  Serious: Yes (Hospitalization)
  Sender: FDA-Public Use
  Company Number: US-RADIUS HEALTH INC.-2019US000976

PATIENT
  Age: 40 Year
  Sex: Female

DRUGS (1)
  1. TYMLOS [Suspect]
     Active Substance: ABALOPARATIDE
     Indication: OSTEOPOROSIS POSTMENOPAUSAL
     Dosage: 80MCG/QD
     Route: 058
     Dates: start: 201810

REACTIONS (4)
  - Poor peripheral circulation [Not Recovered/Not Resolved]
  - Product quality issue [Unknown]
  - Product dose omission [Recovered/Resolved]
  - Tracheostomy malfunction [Recovering/Resolving]

NARRATIVE: CASE EVENT DATE: 20190322
